FAERS Safety Report 5119581-8 (Version None)
Quarter: 2006Q3

REPORT INFORMATION
  Report Type: 
  Country: None (occurrence: None)
  Receive Date: 20060929
  Receipt Date: 20060905
  Transmission Date: 20061208
  Serious: Yes (Other)
  Sender: FDA-Public Use
  Company Number: 2006115117

PATIENT

DRUGS (2)
  1. SUTENT [Suspect]
     Indication: RENAL CELL CARCINOMA STAGE UNSPECIFIED
     Dosage: 50 MG (50 MG,1 IN 1 D), ORAL
     Route: 048
     Dates: start: 20060401
  2. FORTECORTIN (DEXAMETHASONE) [Suspect]
     Indication: RENAL CELL CARCINOMA STAGE UNSPECIFIED
     Dosage: 10 MG (10 MG,1 IN 1 D)

REACTIONS (3)
  - DRUG INEFFECTIVE [None]
  - DRUG INTERACTION [None]
  - METASTASES TO LUNG [None]
